FAERS Safety Report 9988277 (Version 1)
Quarter: 2014Q1

REPORT INFORMATION
  Report Type: Spontaneous
  Country: US (occurrence: US)
  Receive Date: 20140310
  Receipt Date: 20140310
  Transmission Date: 20141002
  Serious: Yes (Death)
  Sender: FDA-Public Use
  Company Number: US-ROCHE-1361003

PATIENT
  Age: 78 Year
  Sex: Female
  Weight: 74.91 kg

DRUGS (1)
  1. ZELBORAF [Suspect]
     Indication: METASTATIC MALIGNANT MELANOMA
     Dosage: 240 MG; 4 TABS X 12HRS
     Route: 048
     Dates: start: 20130911

REACTIONS (1)
  - Death [Fatal]
